FAERS Safety Report 17973971 (Version 1)
Quarter: 2020Q3

REPORT INFORMATION
  Report Type: Spontaneous
  Country: US (occurrence: US)
  Receive Date: 20200702
  Receipt Date: 20200702
  Transmission Date: 20201103
  Serious: Yes (Other)
  Sender: FDA-Public Use
  Company Number: None

PATIENT
  Age: 64 Year
  Sex: Female
  Weight: 80.9 kg

DRUGS (3)
  1. ACETAMINOPHEN 500MG PO Q6H PRN [Concomitant]
     Dates: start: 20200627
  2. DEXAMETHASONE 6MG IVP DAILY [Concomitant]
     Dates: start: 20200629
  3. REMDESIVIR. [Suspect]
     Active Substance: REMDESIVIR
     Route: 042
     Dates: start: 20200629

REACTIONS (1)
  - Transaminases increased [None]

NARRATIVE: CASE EVENT DATE: 20200630
